FAERS Safety Report 7142713-7 (Version None)
Quarter: 2010Q4

REPORT INFORMATION
  Report Type: 
  Country: None (occurrence: None)
  Receive Date: 20101207
  Receipt Date: 20101130
  Transmission Date: 20110411
  Serious: Yes (Hospitalization, Other)
  Sender: FDA-Public Use
  Company Number: US-AMGEN-KDL263809

PATIENT

DRUGS (4)
  1. ENBREL [Suspect]
     Indication: PSORIATIC ARTHROPATHY
     Dosage: 50 MG, 2 TIMES/WK
     Route: 058
     Dates: start: 20060901
  2. ENBREL [Suspect]
     Indication: PSORIASIS
     Dosage: 50 MG, QWK
     Dates: start: 20000101
  3. ENBREL [Suspect]
  4. TREXALL [Concomitant]
     Dates: start: 20070101

REACTIONS (9)
  - BACK INJURY [None]
  - DYSSTASIA [None]
  - EYE INFLAMMATION [None]
  - JOINT DISLOCATION [None]
  - NEUROPATHY PERIPHERAL [None]
  - PAIN [None]
  - PARAESTHESIA [None]
  - PSORIASIS [None]
  - SCLERAL OEDEMA [None]
